FAERS Safety Report 4969605-3 (Version None)
Quarter: 2006Q2

REPORT INFORMATION
  Report Type: 
  Country: None (occurrence: None)
  Receive Date: 20060406
  Receipt Date: 20060330
  Transmission Date: 20061013
  Serious: Yes (Hospitalization)
  Sender: FDA-Public Use
  Company Number: 231441K06USA

PATIENT
  Age: 53 Year
  Sex: Female
  Weight: 56.246 kg

DRUGS (5)
  1. REBIF [Suspect]
     Indication: MULTIPLE SCLEROSIS
     Dosage: 44 MCG, 3 IN 1 WEEKS, SUBCUTANEOUS
     Route: 058
     Dates: start: 20050314
  2. PROVIGIL [Concomitant]
  3. BACLOFEN [Concomitant]
  4. ZANAFLEX [Concomitant]
  5. ACTONEL [Concomitant]

REACTIONS (8)
  - ARTHRALGIA [None]
  - BLOOD ALKALINE PHOSPHATASE DECREASED [None]
  - CONDITION AGGRAVATED [None]
  - LIVER FUNCTION TEST ABNORMAL [None]
  - MULTIPLE SCLEROSIS [None]
  - URINARY RETENTION [None]
  - URINARY TRACT INFECTION [None]
  - WHITE BLOOD CELL COUNT DECREASED [None]
